FAERS Safety Report 5054505-3 (Version None)
Quarter: 2006Q2

REPORT INFORMATION
  Report Type: 
  Country: None (occurrence: None)
  Receive Date: 20060616
  Receipt Date: 20060411
  Transmission Date: 20061013
  Serious: Yes (Death)
  Sender: FDA-Public Use
  Company Number: 224092

PATIENT
  Sex: Female

DRUGS (4)
  1. AVASTIN [Suspect]
     Indication: RENAL CELL CARCINOMA STAGE UNSPECIFIED
  2. WATER PILL (UNK INGREDIENTS) (DIURETIC NOS) [Concomitant]
  3. ANTIBIOTIC CREAM (ANTIBIOTIC NOS) [Concomitant]
  4. PAIN MEDICATION (ANALGESIC NOS) [Concomitant]

REACTIONS (1)
  - INTESTINAL OBSTRUCTION [None]
